FAERS Safety Report 8866211 (Version 1)
Quarter: 2012Q4

REPORT INFORMATION
  Report Type: 
  Country: US (occurrence: US)
  Receive Date: 20121025
  Receipt Date: 20121025
  Transmission Date: 20130627
  Serious: No
  Sender: FDA-Public Use
  Company Number: US-PFIZER INC-2012265733

PATIENT
  Age: 45 Year
  Sex: Male
  Weight: 111 kg

DRUGS (4)
  1. DEPO-MEDROL [Suspect]
     Indication: PAIN
     Dosage: UNK dose, every 2 weeks
     Route: 008
     Dates: start: 201202, end: 201205
  2. AVALIDE [Concomitant]
     Indication: HYPERTENSION
     Dosage: 300 mg, daily
  3. VICODIN [Concomitant]
     Indication: PAIN
     Dosage: UNK
  4. PERCOCET [Concomitant]
     Indication: PAIN
     Dosage: UNK

REACTIONS (2)
  - Rash [Unknown]
  - Headache [Unknown]
